FAERS Safety Report 25484883 (Version 2)
Quarter: 2025Q3

REPORT INFORMATION
  Report Type: Spontaneous
  Country: EU (occurrence: EU)
  Receive Date: 20250626
  Receipt Date: 20250703
  Transmission Date: 20251021
  Serious: Yes (Other)
  Sender: NOVARTIS
  Company Number: EU-ROCHE-2945029

PATIENT
  Age: 2 Year
  Sex: Male

DRUGS (20)
  1. CYCLOSPORINE [Suspect]
     Active Substance: CYCLOSPORINE
     Indication: Epstein-Barr virus associated lymphoproliferative disorder
     Route: 065
     Dates: start: 2020
  2. CYCLOSPORINE [Suspect]
     Active Substance: CYCLOSPORINE
     Indication: Prophylaxis against graft versus host disease
  3. SIMULECT [Suspect]
     Active Substance: BASILIXIMAB
     Indication: Graft versus host disease
     Dosage: 10 MG ONCE A WEEK (4 DOSES OVERALL AND THE LAST DOSE ON 07/DEC/2020)
     Route: 065
     Dates: start: 20201207
  4. RITUXIMAB [Suspect]
     Active Substance: RITUXIMAB
     Indication: Epstein-Barr virus associated lymphoproliferative disorder
     Route: 042
     Dates: start: 2020
  5. MYCOPHENOLATE MOFETIL [Suspect]
     Active Substance: MYCOPHENOLATE MOFETIL
     Indication: Prophylaxis against graft versus host disease
     Route: 065
     Dates: start: 2020
  6. MYCOPHENOLATE MOFETIL [Suspect]
     Active Substance: MYCOPHENOLATE MOFETIL
     Indication: Epstein-Barr virus associated lymphoproliferative disorder
  7. VALGANCICLOVIR [Suspect]
     Active Substance: VALGANCICLOVIR
     Indication: Cytomegalovirus infection
     Route: 048
  8. FLUDARABINE [Suspect]
     Active Substance: FLUDARABINE PHOSPHATE
     Indication: Epstein-Barr virus associated lymphoproliferative disorder
     Route: 065
     Dates: start: 202010
  9. MABTHERA [Suspect]
     Active Substance: RITUXIMAB
     Indication: Epstein-Barr virus associated lymphoproliferative disorder
     Route: 042
     Dates: start: 2020
  10. TREOSULFAN [Suspect]
     Active Substance: TREOSULFAN
     Indication: Epstein-Barr virus associated lymphoproliferative disorder
     Route: 065
     Dates: start: 202010
  11. THIOTEPA [Suspect]
     Active Substance: THIOTEPA
     Indication: Epstein-Barr virus associated lymphoproliferative disorder
     Route: 065
     Dates: start: 202010
  12. THIOTEPA [Suspect]
     Active Substance: THIOTEPA
     Route: 065
  13. THYMOCYTE IMMUNE GLOBULIN NOS [Suspect]
     Active Substance: THYMOCYTE IMMUNE GLOBULIN NOS
     Indication: Epstein-Barr virus associated lymphoproliferative disorder
     Route: 065
     Dates: start: 202010
  14. THYMOCYTE IMMUNE GLOBULIN NOS [Suspect]
     Active Substance: THYMOCYTE IMMUNE GLOBULIN NOS
     Route: 065
  15. CYCLOPHOSPHAMIDE [Suspect]
     Active Substance: CYCLOPHOSPHAMIDE
     Indication: Epstein-Barr virus associated lymphoproliferative disorder
     Route: 065
     Dates: start: 2020
  16. CYCLOPHOSPHAMIDE [Suspect]
     Active Substance: CYCLOPHOSPHAMIDE
     Indication: Prophylaxis against graft versus host disease
  17. METHYLPREDNISOLONE [Suspect]
     Active Substance: METHYLPREDNISOLONE
     Indication: Graft versus host disease
     Route: 065
  18. METHYLPREDNISOLONE [Suspect]
     Active Substance: METHYLPREDNISOLONE
     Route: 065
  19. ENBREL [Suspect]
     Active Substance: ETANERCEPT
     Indication: Graft versus host disease
     Dosage: 10 MG ONCE A WEEK (6 DOSES OVERALL AND THE LAST DOSE ON 14/DEC/2020; DAY 47
     Route: 065
     Dates: end: 20201207
  20. ENBREL [Suspect]
     Active Substance: ETANERCEPT
     Dosage: 10 MG ONCE A WEEK (6 DOSES OVERALL AND  THE LAST DOSE ON 14/DEC/2020; DAY 47
     Route: 065
     Dates: start: 20201207

REACTIONS (4)
  - Cytomegalovirus infection reactivation [Unknown]
  - Device related sepsis [Recovered/Resolved]
  - Proteus infection [Recovered/Resolved]
  - Off label use [Unknown]

NARRATIVE: CASE EVENT DATE: 20210101
